FAERS Safety Report 23805361 (Version 1)
Quarter: 2024Q2

REPORT INFORMATION
  Report Type: Spontaneous
  Country: IN (occurrence: IN)
  Receive Date: 20240502
  Receipt Date: 20240502
  Transmission Date: 20240716
  Serious: Yes (Hospitalization, Other)
  Sender: FDA-Public Use
  Company Number: IN-AMNEAL PHARMACEUTICALS-2024-AMRX-01476

PATIENT
  Age: 45 Year
  Sex: Female

DRUGS (7)
  1. AMLODIPINE BESYLATE [Suspect]
     Active Substance: AMLODIPINE BESYLATE
     Indication: Coronary artery disease
     Dosage: 5 MILLIGRAM, QD
     Route: 065
  2. AMLODIPINE BESYLATE [Suspect]
     Active Substance: AMLODIPINE BESYLATE
     Indication: Hypertension
  3. METFORMIN HYDROCHLORIDE [Suspect]
     Active Substance: METFORMIN HYDROCHLORIDE
     Indication: Diabetes mellitus
     Dosage: 500 MILLIGRAM, BID
     Route: 065
  4. LEVOTHYROXINE SODIUM [Suspect]
     Active Substance: LEVOTHYROXINE SODIUM
     Indication: Hypothyroidism
     Dosage: 100 MICROGRAM, QD
     Route: 065
  5. ALPRAZOLAM [Suspect]
     Active Substance: ALPRAZOLAM
     Indication: Depression
     Dosage: 0.5 MILLIGRAM, QD (AT BEDTIME)
     Route: 065
  6. TELMISARTAN [Suspect]
     Active Substance: TELMISARTAN
     Indication: Hypertension
     Dosage: 40 MILLIGRAM, QD
     Route: 065
  7. GLIMEPIRIDE [Concomitant]
     Active Substance: GLIMEPIRIDE
     Indication: Diabetes mellitus
     Dosage: 2 MILLIGRAM, BID
     Route: 065

REACTIONS (4)
  - Toxicity to various agents [Recovering/Resolving]
  - Oliguria [Recovering/Resolving]
  - Rales [Recovered/Resolved]
  - Suicide attempt [Unknown]
